FAERS Safety Report 9034890 (Version 1)
Quarter: 2013Q1

REPORT INFORMATION
  Report Type: Report from Study
  Country: US (occurrence: US)
  Receive Date: 20130129
  Receipt Date: 20130129
  Transmission Date: 20140127
  Serious: Yes (Hospitalization)
  Sender: FDA-Public Use
  Company Number: US-ABBOTT-12P-163-0897989-00

PATIENT
  Sex: Female
  Weight: 53.12 kg

DRUGS (8)
  1. HUMIRA 40 MG/ 0.8 ML PRE-FILLED SYRINGE [Suspect]
     Indication: RHEUMATOID ARTHRITIS
     Dates: start: 2010
  2. PREDNISONE [Concomitant]
     Indication: RHEUMATOID ARTHRITIS
  3. PROPRANOL [Concomitant]
     Indication: SUPRAVENTRICULAR TACHYCARDIA
  4. TRAMADOL [Concomitant]
     Indication: ARTHRALGIA
  5. TRAZODONE [Concomitant]
     Indication: SLEEP DISORDER THERAPY
  6. VITAMINS [Concomitant]
     Indication: VITAMIN SUPPLEMENTATION
  7. CALCIUM [Concomitant]
     Indication: MINERAL SUPPLEMENTATION
  8. FISH OIL [Concomitant]
     Indication: SUPPLEMENTATION THERAPY

REACTIONS (2)
  - Influenza [Recovered/Resolved]
  - Sinusitis [Recovered/Resolved]
